FAERS Safety Report 19954608 (Version 1)
Quarter: 2021Q4

REPORT INFORMATION
  Report Type: Spontaneous
  Country: US (occurrence: US)
  Receive Date: 20211014
  Receipt Date: 20211014
  Transmission Date: 20220303
  Serious: No
  Sender: FDA-Public Use
  Company Number: None

PATIENT
  Age: 63 Year
  Sex: Female
  Weight: 91.8 kg

DRUGS (1)
  1. REGEN-COV [Suspect]
     Active Substance: CASIRIVIMAB\IMDEVIMAB
     Indication: COVID-19
     Dosage: ?          OTHER FREQUENCY:ONE TIME DOSE;
     Route: 042
     Dates: start: 20211008, end: 20211008

REACTIONS (3)
  - Paraesthesia [None]
  - Hypoaesthesia [None]
  - Skin discolouration [None]

NARRATIVE: CASE EVENT DATE: 20211008
